FAERS Safety Report 14260403 (Version 1)
Quarter: 2017Q4

REPORT INFORMATION
  Report Type: Report from Study
  Country: US (occurrence: US)
  Receive Date: 20171207
  Receipt Date: 20171207
  Transmission Date: 20180321
  Serious: Yes (Other)
  Sender: FDA-Public Use
  Company Number: US-MYLANLABS-2017M1076319

PATIENT
  Age: 57 Year
  Sex: Male

DRUGS (2)
  1. MITOMYCIN. [Suspect]
     Active Substance: MITOMYCIN
     Indication: ADENOCARCINOMA OF COLON
     Dosage: 30MG FOR FIRST 60 MINUTES FOLLOWED BY 10MG DELIVERED AT 42 DEG C
     Route: 033
  2. MITOMYCIN. [Suspect]
     Active Substance: MITOMYCIN
     Dosage: 10MG FOR 30 MINUTES DELIVERED AT 42 DEG C
     Route: 033

REACTIONS (3)
  - Neutropenia [Unknown]
  - Postoperative ileus [Unknown]
  - Postoperative wound infection [Unknown]
